FAERS Safety Report 20913523 (Version 2)
Quarter: 2024Q2

REPORT INFORMATION
  Report Type: Report from Study
  Country: CA (occurrence: CA)
  Receive Date: 20220603
  Receipt Date: 20240611
  Transmission Date: 20240716
  Serious: Yes (Life-Threatening, Other)
  Sender: FDA-Public Use
  Company Number: CA-002147023-NVSC2020CA183990

PATIENT
  Age: 57 Year
  Sex: Female

DRUGS (2)
  1. AIMOVIG [Suspect]
     Active Substance: ERENUMAB-AOOE
     Indication: Migraine
     Dosage: UNK
     Route: 065
     Dates: start: 20191126
  2. AIMOVIG [Suspect]
     Active Substance: ERENUMAB-AOOE
     Dosage: 140 MILLIGRAM
     Route: 065

REACTIONS (12)
  - Feeling abnormal [Unknown]
  - Syncope [Unknown]
  - Dizziness [Unknown]
  - Vomiting [Unknown]
  - Palpitations [Unknown]
  - Hypoaesthesia [Unknown]
  - Malaise [Unknown]
  - Pain [Unknown]
  - Illness [Unknown]
  - Migraine [Unknown]
  - General physical health deterioration [Unknown]
  - Blood pressure abnormal [Unknown]
